FAERS Safety Report 8616842-2 (Version None)
Quarter: 2012Q3

REPORT INFORMATION
  Report Type: 
  Country: None (occurrence: None)
  Receive Date: 20120823
  Receipt Date: 20120808
  Transmission Date: 20120928
  Serious: No
  Sender: FDA-Public Use
  Company Number: US-009507513-1208USA003866

PATIENT

DRUGS (1)
  1. IMPLANON [Suspect]
     Indication: CONTRACEPTION
     Dosage: 68MG/3 YEAR IMPLANT
     Route: 059
     Dates: start: 20110506

REACTIONS (2)
  - PEMPHIGUS [None]
  - MEDICAL DEVICE COMPLICATION [None]
